FAERS Safety Report 7991164-1 (Version None)
Quarter: 2011Q4

REPORT INFORMATION
  Report Type: 
  Country: None (occurrence: None)
  Receive Date: 20111219
  Receipt Date: 20111208
  Transmission Date: 20120403
  Serious: Yes (Hospitalization)
  Sender: FDA-Public Use
  Company Number: US-CELGENEUS-163-21880-11121197

PATIENT
  Sex: Male

DRUGS (9)
  1. LASIX [Concomitant]
     Route: 065
  2. MEN'S MULTIVITAMIN + MINERAL [Concomitant]
     Route: 065
  3. REVLIMID [Suspect]
     Dosage: 10 MILLIGRAM
     Route: 048
     Dates: start: 20111027, end: 20110101
  4. FISH OIL [Concomitant]
     Route: 065
  5. DEXAMETHASONE [Concomitant]
     Route: 065
  6. ASPIRIN [Concomitant]
     Route: 065
  7. SUCRALFATE [Concomitant]
     Route: 065
  8. BUPROPION HCL [Concomitant]
     Route: 065
  9. CRESTOR [Concomitant]
     Route: 065

REACTIONS (1)
  - PERICARDIAL EFFUSION [None]
